FAERS Safety Report 16308364 (Version 2)
Quarter: 2019Q4

REPORT INFORMATION
  Report Type: Spontaneous
  Country: US (occurrence: US)
  Receive Date: 20190514
  Receipt Date: 20191212
  Transmission Date: 20200122
  Serious: Yes (Hospitalization, Other)
  Sender: FDA-Public Use
  Company Number: US-GLAXOSMITHKLINE-US2019GSK084701

PATIENT
  Sex: Male

DRUGS (6)
  1. PREVACID [Suspect]
     Active Substance: LANSOPRAZOLE
     Indication: PRODUCT USED FOR UNKNOWN INDICATION
     Dosage: UNK
     Route: 065
  2. OMEPRAZOLE. [Suspect]
     Active Substance: OMEPRAZOLE
     Indication: PRODUCT USED FOR UNKNOWN INDICATION
     Dosage: 20 MG
     Route: 065
  3. OMEPRAZOLE. [Suspect]
     Active Substance: OMEPRAZOLE
     Indication: GASTROOESOPHAGEAL REFLUX DISEASE
     Dosage: 20 MG, QD
     Route: 065
  4. OMEPRAZOLE. [Suspect]
     Active Substance: OMEPRAZOLE
     Indication: HIATUS HERNIA
  5. PANTOPRAZOLE [Suspect]
     Active Substance: PANTOPRAZOLE
     Indication: PRODUCT USED FOR UNKNOWN INDICATION
     Dosage: 40 MG, QD
     Route: 048
  6. ESOMEPRAZOLE. [Suspect]
     Active Substance: ESOMEPRAZOLE MAGNESIUM
     Indication: PRODUCT USED FOR UNKNOWN INDICATION
     Dosage: UNK
     Route: 065

REACTIONS (25)
  - Nephritic syndrome [Unknown]
  - Dialysis [Unknown]
  - Renal disorder [Unknown]
  - Proteinuria [Unknown]
  - Chronic kidney disease [Unknown]
  - Glomerulonephritis [Unknown]
  - Hyperchlorhydria [Unknown]
  - Nephropathy [Unknown]
  - Hypertensive nephropathy [Unknown]
  - Rebound acid hypersecretion [Unknown]
  - Nocturia [Unknown]
  - Pulmonary renal syndrome [Unknown]
  - Renal injury [Unknown]
  - Renal impairment [Unknown]
  - Glomerulonephritis rapidly progressive [Unknown]
  - Acute kidney injury [Unknown]
  - Renal failure [Unknown]
  - Renal vasculitis [Unknown]
  - Urinary incontinence [Unknown]
  - Tubulointerstitial nephritis [Unknown]
  - Urinary retention [Unknown]
  - Pollakiuria [Unknown]
  - Micturition urgency [Unknown]
  - Blood urine present [Unknown]
  - Haematuria [Unknown]
